FAERS Safety Report 8351708-7 (Version None)
Quarter: 2012Q2

REPORT INFORMATION
  Report Type: 
  Country: None (occurrence: None)
  Receive Date: 20120511
  Receipt Date: 20120502
  Transmission Date: 20120825
  Serious: No
  Sender: FDA-Public Use
  Company Number: US-BIOGENIDEC-2012BI015711

PATIENT
  Sex: Female

DRUGS (1)
  1. TYSABRI [Suspect]
     Indication: MULTIPLE SCLEROSIS
     Route: 042
     Dates: start: 20111221

REACTIONS (5)
  - DISTURBANCE IN ATTENTION [None]
  - CHEST DISCOMFORT [None]
  - MUSCLE SPASMS [None]
  - DYSPNOEA [None]
  - MUSCLE TIGHTNESS [None]
